FAERS Safety Report 8830192 (Version 1)
Quarter: 2012Q4

REPORT INFORMATION
  Report Type: 
  Country: US (occurrence: US)
  Receive Date: 20121008
  Receipt Date: 20121008
  Transmission Date: 20130627
  Serious: Yes (Hospitalization, Other)
  Sender: FDA-Public Use
  Company Number: US-BAXTER-2012BAX018625

PATIENT
  Age: 41 Year
  Sex: Female

DRUGS (2)
  1. DIANEAL LOW CALCIUM [Suspect]
     Indication: PERITONEAL DIALYSIS
     Route: 033
  2. LEVAQUIN [Suspect]
     Indication: DRUG USE FOR UNKNOWN INDICATION

REACTIONS (14)
  - Myocardial infarction [Unknown]
  - Oxygen saturation decreased [Unknown]
  - Peritonitis bacterial [Not Recovered/Not Resolved]
  - Pneumonia [Unknown]
  - Peritoneal dialysis complication [Unknown]
  - Faeces discoloured [Unknown]
  - Swelling [Unknown]
  - Paraesthesia [Unknown]
  - Malaise [Unknown]
  - Pyrexia [Unknown]
  - Dehydration [Unknown]
  - Vomiting [Unknown]
  - Constipation [Unknown]
  - Myalgia [Unknown]
